FAERS Safety Report 11603910 (Version 1)
Quarter: 2015Q4

REPORT INFORMATION
  Report Type: Spontaneous
  Country: GB (occurrence: GB)
  Receive Date: 20151007
  Receipt Date: 20151007
  Transmission Date: 20160304
  Serious: Yes (Disabling)
  Sender: FDA-Public Use
  Company Number: GB-ACCORD-034156

PATIENT
  Age: 51 Year
  Sex: Female
  Weight: 53 kg

DRUGS (7)
  1. AMITRIPTYLINE [Suspect]
     Active Substance: AMITRIPTYLINE
     Indication: PRODUCT USED FOR UNKNOWN INDICATION
     Dates: start: 20150917
  2. TRAZODONE [Concomitant]
     Active Substance: TRAZODONE HYDROCHLORIDE
     Dosage: AT NIGHT
     Dates: start: 20040909
  3. DIAZEPAM. [Concomitant]
     Active Substance: DIAZEPAM
     Dosage: AT NIGHT
     Dates: start: 20040909
  4. LANSOPRAZOLE. [Concomitant]
     Active Substance: LANSOPRAZOLE
     Dates: start: 20150615
  5. MICRONOR [Concomitant]
     Active Substance: NORETHINDRONE
     Dates: start: 20150619
  6. FOLATE SODIUM/FOLIC ACID [Concomitant]
     Dates: start: 20040909
  7. ATENOLOL/ATENOLOL HYDROCHLORIDE [Concomitant]
     Dates: start: 20040909

REACTIONS (2)
  - Feeling abnormal [Unknown]
  - Dizziness [Recovered/Resolved]

NARRATIVE: CASE EVENT DATE: 20150917
